FAERS Safety Report 11531898 (Version 1)
Quarter: 2015Q3

REPORT INFORMATION
  Report Type: Spontaneous
  Country: US (occurrence: US)
  Receive Date: 20150903
  Receipt Date: 20150903
  Transmission Date: 20151125
  Serious: No
  Sender: FDA-Public Use
  Company Number: US-ELI_LILLY_AND_COMPANY-US201111005580

PATIENT
  Sex: Male

DRUGS (3)
  1. NEURONTIN [Concomitant]
     Active Substance: GABAPENTIN
     Dosage: UNK
  2. HUMALOG [Suspect]
     Active Substance: INSULIN LISPRO
     Indication: DIABETES MELLITUS
     Dosage: UNK, PRN
  3. LANTUS [Concomitant]
     Active Substance: INSULIN GLARGINE
     Dosage: UNK

REACTIONS (7)
  - Blood glucose increased [Unknown]
  - Nerve injury [Not Recovered/Not Resolved]
  - Keratomileusis [Unknown]
  - Dizziness [Unknown]
  - Blood glucose decreased [Recovered/Resolved]
  - Dizziness [Recovered/Resolved]
  - Neuropathy peripheral [Not Recovered/Not Resolved]

NARRATIVE: CASE EVENT DATE: 2006
